FAERS Safety Report 9329820 (Version 6)
Quarter: 2013Q4

REPORT INFORMATION
  Report Type: Report from Study
  Country: US (occurrence: US)
  Receive Date: 20130604
  Receipt Date: 20131002
  Transmission Date: 20140711
  Serious: Yes (Death, Hospitalization)
  Sender: FDA-Public Use
  Company Number: US-ACTELION-A-US2013-83812

PATIENT
  Age: 48 Year
  Sex: Female

DRUGS (2)
  1. VELETRI [Suspect]
     Indication: PULMONARY ARTERIAL HYPERTENSION
     Dosage: 10.7 NG/KG, PER MIN
     Route: 042
     Dates: start: 20130502
  2. LETAIRIS [Concomitant]
     Dosage: 10.7 NG/KG, UNK

REACTIONS (7)
  - Multi-organ failure [Fatal]
  - Systemic lupus erythematosus [Fatal]
  - Clostridium difficile infection [Unknown]
  - Asthenia [Unknown]
  - Tongue disorder [Unknown]
  - Decreased appetite [Unknown]
  - Renal failure [Unknown]
